FAERS Safety Report 25618980 (Version 3)
Quarter: 2025Q3

REPORT INFORMATION
  Report Type: Spontaneous
  Country: RU (occurrence: RU)
  Receive Date: 20250729
  Receipt Date: 20250917
  Transmission Date: 20251020
  Serious: Yes (Other)
  Sender: NOVO NORDISK
  Company Number: RU-NOVOPROD-1460936

PATIENT
  Age: 53 Year
  Sex: Female
  Weight: 55 kg

DRUGS (3)
  1. NOVORAPID [Suspect]
     Active Substance: INSULIN ASPART
     Indication: Type 1 diabetes mellitus
     Dosage: 9 IU, QD (3IU-3IU-3IU)
     Route: 058
     Dates: start: 202411
  2. NOVORAPID [Suspect]
     Active Substance: INSULIN ASPART
     Route: 058
     Dates: end: 202506
  3. TRESIBA [Concomitant]
     Active Substance: INSULIN DEGLUDEC
     Indication: Type 1 diabetes mellitus
     Dosage: 6 IU, QD  (6IU ONCE DAILY IN THE MORNING)
     Route: 058
     Dates: start: 202502

REACTIONS (8)
  - Blood glucose fluctuation [Recovered/Resolved]
  - Device malfunction [Unknown]
  - Incorrect dose administered by device [Unknown]
  - Suspected product quality issue [Unknown]
  - Wrong technique in product usage process [Unknown]
  - Device mechanical issue [Unknown]
  - Multiple use of single-use product [Unknown]
  - Product storage error [Unknown]

NARRATIVE: CASE EVENT DATE: 20241101
